FAERS Safety Report 9338288 (Version 1)
Quarter: 2013Q2

REPORT INFORMATION
  Report Type: Spontaneous
  Country: US (occurrence: None)
  Receive Date: 20130605
  Receipt Date: 20130605
  Transmission Date: 20140414
  Serious: Yes (Hospitalization)
  Sender: FDA-Public Use
  Company Number: None

PATIENT
  Age: 62 Year
  Sex: Female
  Weight: 48.6 kg

DRUGS (2)
  1. PERTUZUMAB [Suspect]
     Indication: BREAST CANCER METASTATIC
     Route: 042
     Dates: start: 002901, end: 002304
  2. HERCEPTIN [Suspect]
     Indication: BREAST CANCER METASTATIC
     Route: 042
     Dates: start: 002901, end: 002304

REACTIONS (5)
  - Pyrexia [None]
  - Neutropenia [None]
  - Lymphadenopathy [None]
  - Spleen disorder [None]
  - Pulmonary oedema [None]
